FAERS Safety Report 9462169 (Version 2)
Quarter: 2013Q3

REPORT INFORMATION
  Report Type: Report from Study
  Country: BR (occurrence: BR)
  Receive Date: 20130816
  Receipt Date: 20130913
  Transmission Date: 20140515
  Serious: Yes (Death, Hospitalization)
  Sender: FDA-Public Use
  Company Number: PHHY2013BR088143

PATIENT
  Sex: Male

DRUGS (1)
  1. EXELON [Suspect]
     Indication: NERVOUS SYSTEM DISORDER
     Dosage: UNK UKN, UNK

REACTIONS (1)
  - Pneumonia [Fatal]
